FAERS Safety Report 17516662 (Version 1)
Quarter: 2020Q1

REPORT INFORMATION
  Report Type: Spontaneous
  Country: CO (occurrence: CO)
  Receive Date: 20200309
  Receipt Date: 20200309
  Transmission Date: 20200409
  Serious: Yes (Hospitalization)
  Sender: FDA-Public Use
  Company Number: CO-AMGEN-COLSP2020031224

PATIENT
  Age: 56 Year
  Sex: Female
  Weight: 62.5 kg

DRUGS (4)
  1. REPATHA [Suspect]
     Active Substance: EVOLOCUMAB
     Indication: TYPE IIA HYPERLIPIDAEMIA
     Dosage: 140 MILLIGRAM
     Route: 058
  2. ORLISTAT. [Concomitant]
     Active Substance: ORLISTAT
     Indication: HYPERCHOLESTEROLAEMIA
  3. EZETIMIBE;ROSUVASTATIN [Concomitant]
     Active Substance: EZETIMIBE\ROSUVASTATIN
     Indication: HYPERCHOLESTEROLAEMIA
     Dosage: 10 MG/10 MG EACH DAY
  4. REPATHA [Suspect]
     Active Substance: EVOLOCUMAB
     Dosage: 140 MILLIGRAM, Q2WK
     Route: 058
     Dates: start: 202002, end: 20200224

REACTIONS (5)
  - Malaise [Unknown]
  - Myalgia [Recovered/Resolved]
  - Impaired work ability [Unknown]
  - Overweight [Unknown]
  - Asthenia [Unknown]

NARRATIVE: CASE EVENT DATE: 202002
